FAERS Safety Report 5558817-6 (Version None)
Quarter: 2007Q4

REPORT INFORMATION
  Report Type: 
  Country: None (occurrence: None)
  Receive Date: 20071214
  Receipt Date: 20070905
  Transmission Date: 20080405
  Serious: No
  Sender: FDA-Public Use
  Company Number: US-ABBOTT-07P-163-0416618-00

PATIENT
  Sex: Female
  Weight: 56.75 kg

DRUGS (4)
  1. HUMIRA [Suspect]
     Indication: CROHN'S DISEASE
     Dosage: PEN
     Route: 058
     Dates: start: 20070301
  2. HUMIRA [Suspect]
     Route: 058
     Dates: start: 20070201
  3. HUMIRA [Suspect]
     Dosage: PRE-FILLED SYRINGE
     Route: 058
     Dates: end: 20070301
  4. TAZAROTENE [Concomitant]
     Indication: PSORIASIS
     Route: 061
     Dates: start: 20070719

REACTIONS (1)
  - PSORIASIS [None]
